FAERS Safety Report 8186867-2 (Version None)
Quarter: 2012Q1

REPORT INFORMATION
  Report Type: 
  Country: None (occurrence: None)
  Receive Date: 20120301
  Receipt Date: 20120214
  Transmission Date: 20120608
  Serious: Yes (Hospitalization, Disabling)
  Sender: FDA-Public Use
  Company Number: DSA_55257-2012

PATIENT
  Age: 74 Year
  Sex: Female

DRUGS (4)
  1. REMICADE [Suspect]
     Indication: COLITIS ULCERATIVE
     Dosage: (DF INTRAVENOUS (NOT OTHERWISE SPECIFIED))
     Route: 042
     Dates: start: 20080101, end: 20080101
  2. FLAGYL [Suspect]
     Indication: PRODUCT USED FOR UNKNOWN INDICATION
     Dosage: (DF)
     Dates: start: 20080501
  3. HUMIRA [Suspect]
     Indication: COLITIS ULCERATIVE
     Dosage: (DF SUBCUTANEOUS)
     Route: 058
     Dates: start: 20080528
  4. IMUREL /00001501/ (IMUREL - AZATHIOPRINE) (NOT SPECIFIED) [Suspect]
     Indication: COLITIS ULCERATIVE
     Dosage: (DF)
     Dates: start: 20080101, end: 20080101

REACTIONS (4)
  - DIPLOPIA [None]
  - NERVOUS SYSTEM DISORDER [None]
  - BALANCE DISORDER [None]
  - HYPOAESTHESIA [None]
